FAERS Safety Report 13764286 (Version 2)
Quarter: 2017Q3

REPORT INFORMATION
  Report Type: Spontaneous
  Country: CH (occurrence: CH)
  Receive Date: 20170718
  Receipt Date: 20170720
  Transmission Date: 20171127
  Serious: Yes (Other)
  Sender: FDA-Public Use
  Company Number: CH-BAYER-2017-133878

PATIENT
  Sex: Female

DRUGS (4)
  1. MIRENA [Suspect]
     Active Substance: LEVONORGESTREL
     Dosage: 20 MCG/24HR, CONT
     Route: 015
  2. MIRENA [Suspect]
     Active Substance: LEVONORGESTREL
     Dosage: 20 MCG/24HR, CONT
     Route: 015
  3. MIRENA [Suspect]
     Active Substance: LEVONORGESTREL
     Dosage: 20 MCG/24HR, CONT
     Route: 015
  4. PROGYNOVA [Suspect]
     Active Substance: ESTRADIOL VALERATE
     Indication: ENDOMETRIAL DISORDER

REACTIONS (6)
  - Endometrial atrophy [None]
  - Off label use [None]
  - Embedded device [None]
  - Chlamydial infection [None]
  - Product use in unapproved indication [None]
  - Therapeutic product ineffective for unapproved indication [None]
